FAERS Safety Report 16368651 (Version 2)
Quarter: 2019Q2

REPORT INFORMATION
  Report Type: Spontaneous
  Country: US (occurrence: US)
  Receive Date: 20190529
  Receipt Date: 20190625
  Transmission Date: 20190711
  Serious: Yes (Death)
  Sender: FDA-Public Use
  Company Number: US-LEXICON PHARMACEUTICALS, INC-19-1606-00603

PATIENT
  Sex: Male

DRUGS (18)
  1. CITALOPRAM [Concomitant]
     Active Substance: CITALOPRAM HYDROBROMIDE
  2. LOPERAMIDE HCL [Concomitant]
     Active Substance: LOPERAMIDE HYDROCHLORIDE
  3. METOPROLOL SUCCINATE ER [Concomitant]
     Active Substance: METOPROLOL SUCCINATE
  4. PROMETHAZINE HCL [Concomitant]
     Active Substance: PROMETHAZINE HYDROCHLORIDE
  5. LOMOTIL [Concomitant]
     Active Substance: ATROPINE SULFATE\DIPHENOXYLATE HYDROCHLORIDE
  6. TELOTRISTAT ETHYL [Suspect]
     Active Substance: TELOTRISTAT ETHYL
     Indication: CARCINOID SYNDROME
     Route: 048
     Dates: start: 20180805
  7. TYLENOL [Concomitant]
     Active Substance: ACETAMINOPHEN
  8. TEMOZOLOMIDE. [Concomitant]
     Active Substance: TEMOZOLOMIDE
  9. POTASSIUM [Concomitant]
     Active Substance: POTASSIUM
  10. ALPRAZOLAM. [Concomitant]
     Active Substance: ALPRAZOLAM
  11. XELODA [Concomitant]
     Active Substance: CAPECITABINE
  12. HEPARIN SODIUM. [Concomitant]
     Active Substance: HEPARIN SODIUM
  13. OCTREOTIDE ACETATE. [Concomitant]
     Active Substance: OCTREOTIDE ACETATE
  14. KLOR-CON [Concomitant]
     Active Substance: POTASSIUM CHLORIDE
  15. CELEXA [Concomitant]
     Active Substance: CITALOPRAM HYDROBROMIDE
  16. ZOFRAN [Concomitant]
     Active Substance: ONDANSETRON HYDROCHLORIDE
  17. OXYCODONE [Concomitant]
     Active Substance: OXYCODONE
  18. SODIUM CHLORIDE. [Concomitant]
     Active Substance: SODIUM CHLORIDE

REACTIONS (3)
  - Death [None]
  - Malaise [Unknown]
  - Decreased appetite [Unknown]
